FAERS Safety Report 10237087 (Version 1)
Quarter: 2014Q1

REPORT INFORMATION
  Report Type: Spontaneous
  Country: US (occurrence: None)
  Receive Date: 20140306
  Receipt Date: 20140306
  Transmission Date: 20141002
  Serious: Yes (Other)
  Sender: FDA-Public Use
  Company Number: 163-21880-13010432

PATIENT
  Age: 42 Year
  Sex: Female
  Weight: 61.64 kg

DRUGS (8)
  1. REVLIMID(LENALIDOMIDE)(25 MILLIGRAM, CAPSULES) [Suspect]
     Indication: PLASMA CELL MYELOMA
     Dosage: 25 MG, 21 IN 28 D, PO.?
     Route: 048
     Dates: start: 20120925
  2. POTASSIUM CHLORIDE(POTASSIUM CHLORIDE)(UKNOWN) [Concomitant]
  3. MULTIVITAMINS(MULTIVITAMINS)(UKNOWN) [Concomitant]
  4. DYAZIDE(DYAZIDE) [Concomitant]
  5. DEXAMETHASONE(DEXAMETHASONE) [Concomitant]
  6. LYRICA(PREGABALIN) [Concomitant]
  7. BITAMIN B12(CYANOCOBALAMIN) [Concomitant]
  8. VITAMIN D (ERGOCALCIFEROL) [Concomitant]

REACTIONS (2)
  - Mood swings [None]
  - Agitation [None]
